FAERS Safety Report 23167896 (Version 1)
Quarter: 2023Q4

REPORT INFORMATION
  Report Type: Spontaneous
  Country: US (occurrence: US)
  Receive Date: 20231109
  Receipt Date: 20231109
  Transmission Date: 20240109
  Serious: No
  Sender: FDA-Public Use
  Company Number: US-Calliditas-2023CAL01407

PATIENT
  Age: 48 Year
  Sex: Female
  Weight: 116.1 kg

DRUGS (1)
  1. TARPEYO [Suspect]
     Active Substance: BUDESONIDE
     Indication: IgA nephropathy
     Route: 048
     Dates: start: 20230903

REACTIONS (3)
  - Therapy interrupted [Unknown]
  - Product use issue [Unknown]
  - Malaise [Unknown]
